FAERS Safety Report 17633475 (Version 2)
Quarter: 2020Q2

REPORT INFORMATION
  Report Type: Spontaneous
  Country: GB (occurrence: GB)
  Receive Date: 20200406
  Receipt Date: 20200409
  Transmission Date: 20200713
  Serious: Yes (Hospitalization, Other)
  Sender: FDA-Public Use
  Company Number: NVSC2020GB092325

PATIENT
  Age: 44 Year
  Sex: Male

DRUGS (3)
  1. LUTATHERA [Suspect]
     Active Substance: LUTETIUM OXODOTREOTIDE LU-177
     Indication: PANCREATIC NEUROENDOCRINE TUMOUR
     Dosage: 7.4 GBQ
     Route: 065
     Dates: start: 201512, end: 201608
  2. LUTATHERA [Suspect]
     Active Substance: LUTETIUM OXODOTREOTIDE LU-177
     Dosage: UNK
     Route: 065
     Dates: start: 201608
  3. OCTREOTIDE. [Suspect]
     Active Substance: OCTREOTIDE
     Indication: PANCREATIC NEUROENDOCRINE TUMOUR
     Route: 065

REACTIONS (6)
  - Drug ineffective [Unknown]
  - Pancreatic neuroendocrine tumour [Unknown]
  - Quality of life decreased [Unknown]
  - Hepatic pain [Unknown]
  - Malignant neoplasm progression [Unknown]
  - Abdominal pain upper [Unknown]
